FAERS Safety Report 4507238-3 (Version None)
Quarter: 2004Q4

REPORT INFORMATION
  Report Type: 
  Country: None (occurrence: None)
  Receive Date: 20041025
  Receipt Date: 20040728
  Transmission Date: 20050328
  Serious: Yes (Hospitalization, Other)
  Sender: FDA-Public Use
  Company Number: US-JNJFOC-20040600601

PATIENT
  Age: 84 Year
  Sex: Male
  Weight: 72.5755 kg

DRUGS (1)
  1. REMICADE [Suspect]
     Dosage: 300 MG, 1 IN 6 WEEK, INTRAVENOUS
     Route: 042
     Dates: start: 20040514

REACTIONS (3)
  - ANAPHYLACTOID REACTION [None]
  - CONVULSION [None]
  - URTICARIA [None]
